FAERS Safety Report 5836901-7 (Version None)
Quarter: 2008Q3

REPORT INFORMATION
  Report Type: 
  Country: None (occurrence: None)
  Receive Date: 20080805
  Receipt Date: 20080723
  Transmission Date: 20090109
  Serious: Yes (Other)
  Sender: FDA-Public Use
  Company Number: MC200800245

PATIENT
  Age: 52 Year
  Sex: Male

DRUGS (3)
  1. ANGIOMAX [Suspect]
     Indication: PERCUTANEOUS CORONARY INTERVENTION
     Dosage: 0.75 MG/KG, BOLUS, INTRAVENOUS; 1.75 MG/KG, HR, INTRAVENOUS; 0.75 MG/KG, BOLUS, INTRAVENOUS
     Route: 042
     Dates: start: 20080301, end: 20080301
  2. ANGIOMAX [Suspect]
     Indication: PERCUTANEOUS CORONARY INTERVENTION
     Dosage: 0.75 MG/KG, BOLUS, INTRAVENOUS; 1.75 MG/KG, HR, INTRAVENOUS; 0.75 MG/KG, BOLUS, INTRAVENOUS
     Route: 042
     Dates: start: 20080301, end: 20080301
  3. ANGIOMAX [Suspect]
     Indication: PERCUTANEOUS CORONARY INTERVENTION
     Dosage: 0.75 MG/KG, BOLUS, INTRAVENOUS; 1.75 MG/KG, HR, INTRAVENOUS; 0.75 MG/KG, BOLUS, INTRAVENOUS
     Route: 042
     Dates: start: 20080301, end: 20080301

REACTIONS (2)
  - COAGULATION TIME ABNORMAL [None]
  - CORONARY ARTERY DISSECTION [None]
